FAERS Safety Report 15982053 (Version 2)
Quarter: 2019Q1

REPORT INFORMATION
  Report Type: Spontaneous
  Country: IT (occurrence: IT)
  Receive Date: 20190219
  Receipt Date: 20190308
  Transmission Date: 20190418
  Serious: No
  Sender: FDA-Public Use
  Company Number: IT-TAKEDA-2019TUS007348

PATIENT
  Age: 37 Year
  Sex: Female

DRUGS (2)
  1. LYRICA [Concomitant]
     Active Substance: PREGABALIN
     Indication: PRODUCT USED FOR UNKNOWN INDICATION
     Dosage: UNK
     Route: 065
  2. BRINTELLIX [Suspect]
     Active Substance: VORTIOXETINE HYDROBROMIDE
     Indication: DEPRESSION
     Dosage: UNK UNK, QD
     Route: 048
     Dates: start: 201807, end: 201808

REACTIONS (15)
  - Menorrhagia [Not Recovered/Not Resolved]
  - Night sweats [Not Recovered/Not Resolved]
  - Vomiting [Not Recovered/Not Resolved]
  - Vasculitis [Not Recovered/Not Resolved]
  - Anxiety disorder [Not Recovered/Not Resolved]
  - Abdominal pain [Not Recovered/Not Resolved]
  - Increased tendency to bruise [Not Recovered/Not Resolved]
  - Pain [Not Recovered/Not Resolved]
  - Vision blurred [Not Recovered/Not Resolved]
  - Disorientation [Not Recovered/Not Resolved]
  - Gait disturbance [Not Recovered/Not Resolved]
  - Malaise [Not Recovered/Not Resolved]
  - Burning sensation [Not Recovered/Not Resolved]
  - Mental fatigue [Not Recovered/Not Resolved]
  - Paraesthesia [Not Recovered/Not Resolved]

NARRATIVE: CASE EVENT DATE: 201808
